FAERS Safety Report 23753964 (Version 3)
Quarter: 2024Q2

REPORT INFORMATION
  Report Type: Spontaneous
  Country: JP (occurrence: JP)
  Receive Date: 20240417
  Receipt Date: 20240523
  Transmission Date: 20240716
  Serious: Yes (Other)
  Sender: FDA-Public Use
  Company Number: JP-BAUSCHBL-2024BNL025651

PATIENT
  Age: 25 Year
  Sex: Male

DRUGS (2)
  1. BEPOTASTINE BESILATE [Suspect]
     Active Substance: BEPOTASTINE BESILATE
     Indication: Seasonal allergy
     Dosage: UNK
     Route: 048
  2. ALLEGRA [Concomitant]
     Active Substance: FEXOFENADINE HYDROCHLORIDE
     Indication: Product used for unknown indication
     Route: 065

REACTIONS (1)
  - Epilepsy [Unknown]
